FAERS Safety Report 24304805 (Version 1)
Quarter: 2024Q3

REPORT INFORMATION
  Report Type: Spontaneous
  Country: US (occurrence: None)
  Receive Date: 20240910
  Receipt Date: 20240910
  Transmission Date: 20241017
  Serious: No
  Sender: UNICHEM
  Company Number: US-ARIS GLOBAL-UCM202406-000708

PATIENT
  Sex: Female

DRUGS (1)
  1. TRAMADOL HCL [Suspect]
     Active Substance: TRAMADOL HYDROCHLORIDE
     Indication: Arthritis
     Dates: start: 20240601

REACTIONS (1)
  - Sedation [Not Recovered/Not Resolved]

NARRATIVE: CASE EVENT DATE: 20240601
